FAERS Safety Report 14849783 (Version 1)
Quarter: 2018Q2

REPORT INFORMATION
  Report Type: Spontaneous
  Country: US (occurrence: US)
  Receive Date: 20180504
  Receipt Date: 20180504
  Transmission Date: 20180711
  Serious: Yes (Disabling, Other)
  Sender: FDA-Public Use
  Company Number: US-TARO-2017TAR00273

PATIENT
  Sex: Male

DRUGS (1)
  1. AMIODARONE HCL TABLET 200 MG [Suspect]
     Active Substance: AMIODARONE HYDROCHLORIDE
     Indication: ATRIAL FIBRILLATION
     Dosage: UNK
     Route: 048
     Dates: start: 201407, end: 201501

REACTIONS (6)
  - Burning sensation [Not Recovered/Not Resolved]
  - Asthenia [Unknown]
  - Pulmonary fibrosis [Not Recovered/Not Resolved]
  - Off label use [Recovered/Resolved]
  - Haemoptysis [Unknown]
  - Hepatic cirrhosis [Not Recovered/Not Resolved]

NARRATIVE: CASE EVENT DATE: 201504
